FAERS Safety Report 8936530 (Version 5)
Quarter: 2013Q1

REPORT INFORMATION
  Report Type: Spontaneous
  Country: US (occurrence: US)
  Receive Date: 20121130
  Receipt Date: 20130201
  Transmission Date: 20140127
  Serious: Yes (Other)
  Sender: FDA-Public Use
  Company Number: US-PFIZER INC-2012298054

PATIENT
  Age: 79 Year
  Sex: Female

DRUGS (13)
  1. CELEBREX [Suspect]
     Indication: OSTEOARTHRITIS
     Dosage: 200 MG, 1X/DAY
     Route: 048
  2. RELPAX [Suspect]
     Indication: MIGRAINE
     Dosage: 40MG, AS NEEDED/UP TO 3X WEEK
     Route: 048
  3. ASA [Concomitant]
     Dosage: 81 MG, UNK
  4. CLONAZEPAM [Concomitant]
     Dosage: UNK
  5. FEXOFENADINE [Concomitant]
     Dosage: UNK
  6. PREMARIN VAGINAL CREAM [Concomitant]
     Dosage: UNK
  7. TOPAMAX [Concomitant]
     Dosage: UNK
  8. TRAMADOL [Concomitant]
     Dosage: UNK
  9. TRAZODONE [Concomitant]
     Dosage: UNK
  10. VITAMIN D3 [Concomitant]
     Dosage: UNK
  11. MSM [Concomitant]
     Dosage: UNK
  12. CALCIUM [Concomitant]
     Dosage: UNK
  13. TYLENOL [Concomitant]
     Dosage: UNK

REACTIONS (1)
  - Deafness [Not Recovered/Not Resolved]
